FAERS Safety Report 4587152-8 (Version None)
Quarter: 2005Q1

REPORT INFORMATION
  Report Type: 
  Country: None (occurrence: None)
  Receive Date: 20050215
  Receipt Date: 20050131
  Transmission Date: 20050727
  Serious: Yes (Death, Hospitalization)
  Sender: FDA-Public Use
  Company Number: 2005-0007982

PATIENT
  Age: 39 Year
  Sex: Male

DRUGS (1)
  1. VIREAD [Suspect]
     Indication: HIV INFECTION

REACTIONS (4)
  - HYPOTENSION [None]
  - HYPOXIA [None]
  - RESPIRATORY FAILURE [None]
  - SHOCK [None]
